FAERS Safety Report 9092626 (Version 1)
Quarter: 2013Q1

REPORT INFORMATION
  Report Type: Spontaneous
  Country: US (occurrence: US)
  Receive Date: 20130218
  Receipt Date: 20130218
  Transmission Date: 20140127
  Serious: No
  Sender: FDA-Public Use
  Company Number: US-ABBOTT-12P-163-1014711-00

PATIENT
  Age: 53 Year
  Sex: Male

DRUGS (2)
  1. SIMCOR 500/20 [Suspect]
     Indication: PRODUCT USED FOR UNKNOWN INDICATION
     Dosage: EVERY MORNING
     Route: 048
     Dates: start: 201011
  2. SIMCOR 500/20 [Suspect]
     Dosage: EVERY MORNING
     Route: 048
     Dates: start: 20121127

REACTIONS (2)
  - Drug dose omission [Unknown]
  - Flushing [Unknown]
